FAERS Safety Report 5004833-2 (Version None)
Quarter: 2006Q2

REPORT INFORMATION
  Report Type: 
  Country: None (occurrence: None)
  Receive Date: 20060517
  Receipt Date: 20060407
  Transmission Date: 20061013
  Serious: Yes (Hospitalization, Disabling)
  Sender: FDA-Public Use
  Company Number: US-MERCK-0604USA01925

PATIENT
  Age: 62 Year
  Sex: Male
  Weight: 57 kg

DRUGS (13)
  1. VIOXX [Suspect]
     Indication: ARTHRITIS
     Route: 048
     Dates: start: 20030101, end: 20040101
  2. PEPCID [Concomitant]
     Route: 065
  3. ASPIRIN [Concomitant]
     Route: 065
  4. LOPRESSOR [Concomitant]
     Route: 065
  5. MIACALCIN [Concomitant]
     Route: 065
  6. NEURONTIN [Concomitant]
     Route: 065
  7. VICODIN [Concomitant]
     Route: 065
  8. ALPHAGAN [Concomitant]
     Route: 065
  9. PLENDIL [Concomitant]
     Route: 065
  10. MINOXIDIL GERBIOL [Concomitant]
     Route: 065
  11. AMARYL [Concomitant]
     Route: 065
  12. LISINOPRIL [Concomitant]
     Route: 065
  13. LANTUS [Concomitant]
     Route: 065

REACTIONS (20)
  - ANAEMIA [None]
  - BACK DISORDER [None]
  - BACK PAIN [None]
  - CARDIAC DISORDER [None]
  - CARDIAC FAILURE CONGESTIVE [None]
  - CHEST PAIN [None]
  - CORONARY ARTERY DISEASE [None]
  - DIABETES MELLITUS INSULIN-DEPENDENT [None]
  - EXOSTOSIS [None]
  - HEMIPARESIS [None]
  - HYPERTENSION [None]
  - HYPOGLYCAEMIA [None]
  - MULTIPLE MYELOMA [None]
  - MYOCARDIAL INFARCTION [None]
  - OSTEOPOROSIS [None]
  - PAIN IN EXTREMITY [None]
  - PULMONARY OEDEMA [None]
  - RENAL FAILURE CHRONIC [None]
  - SEPSIS [None]
  - THROMBOSIS [None]
